FAERS Safety Report 13396661 (Version 1)
Quarter: 2017Q2

REPORT INFORMATION
  Report Type: Spontaneous
  Country: US (occurrence: US)
  Receive Date: 20170403
  Receipt Date: 20170403
  Transmission Date: 20170830
  Serious: No
  Sender: FDA-Public Use
  Company Number: US-JNJFOC-20170304804

PATIENT
  Sex: Female

DRUGS (1)
  1. ZYTIGA [Suspect]
     Active Substance: ABIRATERONE ACETATE
     Indication: VULVAL CANCER
     Route: 048
     Dates: start: 20170103

REACTIONS (5)
  - Dyspnoea [Unknown]
  - Hypertension [Unknown]
  - Product use in unapproved indication [Unknown]
  - Blood calcium increased [Unknown]
  - Off label use [Unknown]
